FAERS Safety Report 9946953 (Version 1)
Quarter: 2014Q1

REPORT INFORMATION
  Report Type: Report from Study
  Country: US (occurrence: US)
  Receive Date: 20140303
  Receipt Date: 20140303
  Transmission Date: 20141002
  Serious: No
  Sender: FDA-Public Use
  Company Number: US-ABBVIE-13P-163-1064026-00

PATIENT
  Age: 57 Year
  Sex: Female

DRUGS (9)
  1. HUMIRA [Suspect]
     Indication: CROHN^S DISEASE
     Dates: start: 20130227
  2. LAMICTAL [Concomitant]
     Indication: DEPRESSION
     Dosage: 200 MG DAILY
  3. LEXAPRO [Concomitant]
     Indication: DEPRESSION
     Dosage: 20 MG DAILY
  4. CLONAZEPAM [Concomitant]
     Indication: DEPRESSION
  5. CLONAZEPAM [Concomitant]
     Indication: ANXIETY
  6. LIALDA [Concomitant]
     Indication: CROHN^S DISEASE
  7. RISPERIDONE [Concomitant]
  8. TRAZODONE [Concomitant]
     Indication: DEPRESSION
     Dosage: AT NIGHT
  9. FLEXERIL [Concomitant]
     Indication: INTERVERTEBRAL DISC DEGENERATION

REACTIONS (2)
  - Cough [Not Recovered/Not Resolved]
  - Nasopharyngitis [Not Recovered/Not Resolved]
